FAERS Safety Report 21515031 (Version 1)
Quarter: 2022Q4

REPORT INFORMATION
  Report Type: Spontaneous
  Country: US (occurrence: US)
  Receive Date: 20221027
  Receipt Date: 20221027
  Transmission Date: 20230113
  Serious: No
  Sender: FDA-Public Use
  Company Number: US-UPSHER-SMITH LABORATORIES, LLC-2022USL00043

PATIENT
  Sex: Female
  Weight: 58.967 kg

DRUGS (3)
  1. JANTOVEN [Suspect]
     Active Substance: WARFARIN SODIUM
     Indication: Cerebrovascular accident
     Dosage: 5 MG, 2X/WEEK
     Dates: start: 2018
  2. JANTOVEN [Suspect]
     Active Substance: WARFARIN SODIUM
     Dosage: 2.5 MG, 5X/WEEK
     Dates: start: 2018
  3. JANTOVEN [Suspect]
     Active Substance: WARFARIN SODIUM
     Dosage: UNK, DEPENDS ON MY INR

REACTIONS (2)
  - Constipation [Recovering/Resolving]
  - International normalised ratio fluctuation [Unknown]
